FAERS Safety Report 17836444 (Version 4)
Quarter: 2020Q3

REPORT INFORMATION
  Report Type: Report from Study
  Country: None (occurrence: US)
  Receive Date: 20200529
  Receipt Date: 20200904
  Transmission Date: 20201103
  Serious: Yes (Hospitalization, Other)
  Sender: FDA-Public Use
  Company Number: US-ABBVIE-20P-163-3331924-00

PATIENT
  Age: 89 Year
  Sex: Female
  Weight: 48.8 kg

DRUGS (6)
  1. CELEBREX [Concomitant]
     Active Substance: CELECOXIB
     Indication: PRODUCT USED FOR UNKNOWN INDICATION
     Route: 048
  2. IBUPROFEN. [Concomitant]
     Active Substance: IBUPROFEN
     Indication: PRODUCT USED FOR UNKNOWN INDICATION
     Route: 048
  3. IMBRUVICA [Suspect]
     Active Substance: IBRUTINIB
     Indication: CHRONIC LYMPHOCYTIC LEUKAEMIA
     Route: 048
     Dates: start: 20191126
  4. IMBRUVICA [Suspect]
     Active Substance: IBRUTINIB
     Indication: CHRONIC LYMPHOCYTIC LEUKAEMIA
     Route: 048
     Dates: start: 20191126
  5. IMBRUVICA [Suspect]
     Active Substance: IBRUTINIB
     Route: 048
     Dates: start: 20191126
  6. IMBRUVICA [Suspect]
     Active Substance: IBRUTINIB
     Route: 048
     Dates: start: 202003

REACTIONS (14)
  - Transient ischaemic attack [Recovered/Resolved]
  - Deafness unilateral [Unknown]
  - Cerebrovascular accident [Recovered/Resolved]
  - Oral mucosal blistering [Recovering/Resolving]
  - Influenza [Unknown]
  - Rhinitis [Unknown]
  - Peripheral swelling [Unknown]
  - Burning sensation [Unknown]
  - Gingival bleeding [Unknown]
  - Oropharyngeal blistering [Recovering/Resolving]
  - Eye disorder [Unknown]
  - Nasal mucosal disorder [Not Recovered/Not Resolved]
  - Gingival swelling [Unknown]
  - Carotid artery disease [Unknown]

NARRATIVE: CASE EVENT DATE: 20200107
